FAERS Safety Report 22223350 (Version 2)
Quarter: 2023Q2

REPORT INFORMATION
  Report Type: Report from Study
  Country: EG (occurrence: EG)
  Receive Date: 20230418
  Receipt Date: 20230506
  Transmission Date: 20230721
  Serious: Yes (Hospitalization, Other)
  Sender: FDA-Public Use
  Company Number: EG-002147023-NVSC2023EG086574

PATIENT
  Sex: Male

DRUGS (5)
  1. GILENYA [Suspect]
     Active Substance: FINGOLIMOD HYDROCHLORIDE
     Indication: Multiple sclerosis
     Dosage: QD
     Route: 048
     Dates: start: 2008, end: 2021
  2. GILENYA [Suspect]
     Active Substance: FINGOLIMOD HYDROCHLORIDE
     Dosage: QD
     Route: 048
     Dates: end: 20230228
  3. MINERALS\VITAMINS [Concomitant]
     Active Substance: MINERALS\VITAMINS
     Indication: Supplementation therapy
     Dosage: QD
     Route: 048
  4. COBAL [Concomitant]
     Indication: Back pain
     Dosage: BID
     Route: 048
  5. ALFASIN [Concomitant]
     Indication: Supplementation therapy
     Dosage: QD, WHEN NEEDED
     Route: 048

REACTIONS (7)
  - Multiple sclerosis relapse [Recovered/Resolved]
  - Dyskinesia [Recovered/Resolved]
  - Hypoaesthesia [Recovered/Resolved]
  - Gait inability [Recovered/Resolved]
  - Urinary retention [Recovered/Resolved]
  - Product supply issue [Recovered/Resolved]
  - Drug ineffective [Unknown]

NARRATIVE: CASE EVENT DATE: 20080101
